FAERS Safety Report 22673669 (Version 4)
Quarter: 2023Q4

REPORT INFORMATION
  Report Type: Spontaneous
  Country: HU (occurrence: HU)
  Receive Date: 20230705
  Receipt Date: 20231113
  Transmission Date: 20240110
  Serious: Yes (Other)
  Sender: FDA-Public Use
  Company Number: HU-TAKEDA-2023TUS064931

PATIENT
  Age: 35 Year
  Sex: Male

DRUGS (1)
  1. ADCETRIS [Suspect]
     Active Substance: BRENTUXIMAB VEDOTIN
     Indication: Hodgkin^s disease
     Dosage: UNK
     Route: 065

REACTIONS (2)
  - Respiratory failure [Unknown]
  - Pneumonitis [Recovering/Resolving]
